FAERS Safety Report 12045577 (Version 1)
Quarter: 2016Q1

REPORT INFORMATION
  Report Type: Spontaneous
  Country: US (occurrence: US)
  Receive Date: 20160208
  Receipt Date: 20160208
  Transmission Date: 20160526
  Serious: No
  Sender: FDA-Public Use
  Company Number: US-AMGEN-USASP2016013984

PATIENT
  Age: 28 Year
  Sex: Male

DRUGS (2)
  1. ENBREL [Suspect]
     Active Substance: ETANERCEPT
     Indication: PSORIASIS
     Dosage: 50 MG, QWK
     Route: 065
     Dates: start: 201512
  2. ENBREL [Suspect]
     Active Substance: ETANERCEPT
     Indication: PSORIATIC ARTHROPATHY

REACTIONS (4)
  - Oropharyngeal pain [Unknown]
  - Sinus congestion [Unknown]
  - Cough [Unknown]
  - Chills [Unknown]

NARRATIVE: CASE EVENT DATE: 20160131
